FAERS Safety Report 8866343 (Version 4)
Quarter: 2013Q3

REPORT INFORMATION
  Report Type: Spontaneous
  Country: JP (occurrence: JP)
  Receive Date: 20121025
  Receipt Date: 20130918
  Transmission Date: 20140515
  Serious: Yes (Hospitalization)
  Sender: FDA-Public Use
  Company Number: JP-ROCHE-1081408

PATIENT
  Age: 20 Year
  Sex: Female
  Weight: 53 kg

DRUGS (4)
  1. ACTEMRA [Suspect]
     Indication: RHEUMATOID ARTHRITIS
     Route: 041
     Dates: start: 20110316, end: 20120521
  2. PREDONINE [Suspect]
     Indication: RHEUMATOID ARTHRITIS
     Route: 048
     Dates: start: 20110217, end: 20120615
  3. RHEUMATREX [Suspect]
     Indication: RHEUMATOID ARTHRITIS
     Route: 048
     Dates: start: 20081119, end: 20120615
  4. LOXONIN [Concomitant]
     Indication: RHEUMATOID ARTHRITIS
     Route: 048
     Dates: end: 20120615

REACTIONS (4)
  - Histiocytosis haematophagic [Recovered/Resolved]
  - Infectious mononucleosis [Recovered/Resolved]
  - Disseminated intravascular coagulation [Recovered/Resolved]
  - Epstein-Barr virus infection [Unknown]
